FAERS Safety Report 9504085 (Version 3)
Quarter: 2013Q3

REPORT INFORMATION
  Report Type: Report from Study
  Country: CL (occurrence: CL)
  Receive Date: 20130906
  Receipt Date: 20130916
  Transmission Date: 20140515
  Serious: Yes (Hospitalization, Other)
  Sender: FDA-Public Use
  Company Number: PHHY2013CL091511

PATIENT
  Age: 24 Year
  Sex: Male

DRUGS (2)
  1. LEPONEX / CLOZARIL (CLOZAPINE) [Suspect]
     Route: 048
  2. LEPONEX / CLOZARIL (CLOZAPINE) [Suspect]
     Dosage: 25 MG, QD
     Route: 048
     Dates: start: 20130909

REACTIONS (13)
  - Abdominal pain upper [Unknown]
  - Decreased appetite [Unknown]
  - Pyrexia [Not Recovered/Not Resolved]
  - Diarrhoea [Recovered/Resolved]
  - Nausea [Unknown]
  - Vomiting [Unknown]
  - Chills [Unknown]
  - Leukopenia [Unknown]
  - Renal failure acute [Recovered/Resolved]
  - Arthralgia [Unknown]
  - Pharyngeal erythema [Unknown]
  - Cough [Unknown]
  - Dehydration [Unknown]
